FAERS Safety Report 5584272-6 (Version None)
Quarter: 2008Q1

REPORT INFORMATION
  Report Type: 
  Country: None (occurrence: None)
  Receive Date: 20080108
  Receipt Date: 20071231
  Transmission Date: 20080703
  Serious: Yes (Hospitalization)
  Sender: FDA-Public Use
  Company Number: B0489846A

PATIENT
  Age: 20 Year
  Sex: Male
  Weight: 86 kg

DRUGS (5)
  1. ARIXTRA [Suspect]
     Dosage: 2.5MG PER DAY
     Route: 058
     Dates: start: 20070524, end: 20070528
  2. LOVENOX [Suspect]
     Dosage: 40MG PER DAY
     Route: 058
     Dates: start: 20070522, end: 20070523
  3. KETOPROFEN [Suspect]
     Dosage: 150MG TWICE PER DAY
     Route: 048
     Dates: start: 20070524, end: 20070528
  4. INEXIUM [Suspect]
     Dosage: 20MG PER DAY
     Route: 048
     Dates: start: 20070522, end: 20070528
  5. DOLIPRANE [Suspect]
     Dosage: 1G FOUR TIMES PER DAY
     Route: 048
     Dates: start: 20070522

REACTIONS (3)
  - ANAEMIA [None]
  - CONDITION AGGRAVATED [None]
  - HAEMATOMA [None]
